FAERS Safety Report 7350351-6 (Version None)
Quarter: 2011Q1

REPORT INFORMATION
  Report Type: 
  Country: None (occurrence: None)
  Receive Date: 20110222
  Receipt Date: 20110110
  Transmission Date: 20110831
  Serious: No
  Sender: FDA-Public Use
  Company Number: 025178

PATIENT
  Sex: Male

DRUGS (2)
  1. SODIUM CHLORIDE [Suspect]
  2. LACOSAMIDE [Suspect]
     Dosage: (800 MG INTRAVENOUS (NOT OTHERWISE SPECIFIED) )
     Route: 042

REACTIONS (2)
  - SWELLING [None]
  - EXTRAVASATION [None]
